FAERS Safety Report 14604657 (Version 3)
Quarter: 2021Q4

REPORT INFORMATION
  Report Type: Spontaneous
  Country: JP (occurrence: JP)
  Receive Date: 20180306
  Receipt Date: 20211006
  Transmission Date: 20220303
  Serious: Yes (Death, Hospitalization, Other)
  Sender: FDA-Public Use
  Company Number: PHJP2018JP005138

PATIENT
  Age: 30 Year
  Sex: Female
  Weight: 43.7 kg

DRUGS (11)
  1. TEGRETOL [Suspect]
     Active Substance: CARBAMAZEPINE
     Indication: Temporal lobe epilepsy
     Dosage: 250 MG, TID
     Route: 048
     Dates: start: 20140901
  2. PHENOBARBITAL [Suspect]
     Active Substance: PHENOBARBITAL
     Indication: Temporal lobe epilepsy
     Dosage: 60 MG, QD
     Route: 065
  3. VALPROIC ACID [Concomitant]
     Active Substance: VALPROIC ACID
     Indication: Temporal lobe epilepsy
     Dosage: UNK
     Route: 065
  4. CLOBAZAM [Concomitant]
     Active Substance: CLOBAZAM
     Indication: Temporal lobe epilepsy
     Dosage: UNK
     Route: 065
  5. PHENYTOIN [Concomitant]
     Active Substance: PHENYTOIN
     Indication: Temporal lobe epilepsy
     Route: 065
  6. TOPIRAMATE [Concomitant]
     Active Substance: TOPIRAMATE
     Indication: Temporal lobe epilepsy
     Dosage: UNK
     Route: 065
  7. ZONISAMIDE [Concomitant]
     Active Substance: ZONISAMIDE
     Indication: Temporal lobe epilepsy
     Dosage: UNK
     Route: 065
  8. LAMOTRIGINE [Concomitant]
     Active Substance: LAMOTRIGINE
     Indication: Temporal lobe epilepsy
     Dosage: UNK
     Route: 065
  9. LEVETIRACETAM [Concomitant]
     Active Substance: LEVETIRACETAM
     Indication: Temporal lobe epilepsy
     Dosage: UNK
     Route: 065
  10. ACETAZOLAMIDE [Concomitant]
     Active Substance: ACETAZOLAMIDE
     Indication: Temporal lobe epilepsy
     Dosage: UNK
     Route: 065
  11. GABAPENTIN [Concomitant]
     Active Substance: GABAPENTIN
     Indication: Temporal lobe epilepsy
     Dosage: UNK
     Route: 065

REACTIONS (9)
  - Cardiac arrest [Fatal]
  - Blood pressure decreased [Fatal]
  - Bradycardia [Fatal]
  - Pyelonephritis [Unknown]
  - Sepsis [Unknown]
  - Acute respiratory distress syndrome [Unknown]
  - Oxygen saturation decreased [Unknown]
  - Therapeutic product effect incomplete [Unknown]
  - Nausea [Unknown]
